FAERS Safety Report 15997984 (Version 2)
Quarter: 2019Q3

REPORT INFORMATION
  Report Type: Spontaneous
  Country: US (occurrence: US)
  Receive Date: 20190222
  Receipt Date: 20190716
  Transmission Date: 20191004
  Serious: No
  Sender: FDA-Public Use
  Company Number: US-ACTELION-A-US2019-185980

PATIENT
  Age: 63 Year
  Sex: Male

DRUGS (5)
  1. AMBRISENTAN [Suspect]
     Active Substance: AMBRISENTAN
     Indication: PRODUCT USED FOR UNKNOWN INDICATION
     Dosage: 5 MG, QD
     Route: 065
     Dates: start: 20121113
  2. UPTRAVI [Suspect]
     Active Substance: SELEXIPAG
     Indication: PRODUCT USED FOR UNKNOWN INDICATION
     Dosage: UNK
     Route: 048
     Dates: end: 20190129
  3. WARFARIN [Concomitant]
     Active Substance: WARFARIN
  4. ADEMPAS [Concomitant]
     Active Substance: RIOCIGUAT
  5. TYVASO [Concomitant]
     Active Substance: TREPROSTINIL

REACTIONS (4)
  - Rash [Unknown]
  - Wound [Unknown]
  - Haemorrhage [Not Recovered/Not Resolved]
  - Wound haemorrhage [Unknown]
